FAERS Safety Report 5491810-0 (Version None)
Quarter: 2007Q4

REPORT INFORMATION
  Report Type: 
  Country: None (occurrence: None)
  Receive Date: 20071022
  Receipt Date: 20071010
  Transmission Date: 20080405
  Serious: Yes (Other)
  Sender: FDA-Public Use
  Company Number: FR-BRISTOL-MYERS SQUIBB COMPANY-13937917

PATIENT
  Age: 71 Year
  Sex: Male
  Weight: 53 kg

DRUGS (11)
  1. SUSTIVA [Suspect]
     Dates: start: 20020301
  2. ZERIT [Suspect]
  3. VIDEX [Suspect]
  4. KALETRA [Suspect]
     Dates: start: 20020301
  5. VIREAD [Suspect]
     Dates: start: 20020301
  6. PLAQUENIL [Suspect]
  7. VIRLIX [Concomitant]
  8. TENORMIN [Concomitant]
  9. CORVASAL [Concomitant]
  10. ASPEGIC 325 [Concomitant]
  11. OMEPRAZOLE [Concomitant]

REACTIONS (4)
  - BLOOD PARATHYROID HORMONE INCREASED [None]
  - NEUROPATHY [None]
  - RENAL TUBULAR DISORDER [None]
  - VITAMIN D DEFICIENCY [None]
